FAERS Safety Report 19264400 (Version 1)
Quarter: 2021Q2

REPORT INFORMATION
  Report Type: Spontaneous
  Country: US (occurrence: US)
  Receive Date: 20210517
  Receipt Date: 20210517
  Transmission Date: 20210717
  Serious: No
  Sender: FDA-Public Use
  Company Number: None

PATIENT
  Age: 56 Year
  Sex: Female

DRUGS (3)
  1. QUETIAPINE. [Suspect]
     Active Substance: QUETIAPINE
     Indication: INSOMNIA
     Route: 048
  2. QUETIAPINE. [Suspect]
     Active Substance: QUETIAPINE
     Indication: POST-TRAUMATIC STRESS DISORDER
     Route: 048
  3. VITAMIN D [Concomitant]
     Active Substance: VITAMIN D NOS

REACTIONS (14)
  - Heart rate irregular [None]
  - Dysphagia [None]
  - Amnesia [None]
  - Abnormal dreams [None]
  - Paraesthesia [None]
  - Dementia [None]
  - Neuropathy peripheral [None]
  - Pain in extremity [None]
  - Alopecia [None]
  - Weight increased [None]
  - Myalgia [None]
  - Anxiety [None]
  - Suicidal ideation [None]
  - Arthralgia [None]

NARRATIVE: CASE EVENT DATE: 20180101
